FAERS Safety Report 19954261 (Version 2)
Quarter: 2022Q4

REPORT INFORMATION
  Report Type: Spontaneous
  Country: DE (occurrence: DE)
  Receive Date: 20211013
  Receipt Date: 20221212
  Transmission Date: 20230112
  Serious: Yes (Hospitalization)
  Sender: FDA-Public Use
  Company Number: DE-ADRED-06691-01

PATIENT
  Age: 39 Year
  Sex: Female
  Weight: 92 kg

DRUGS (6)
  1. EPIRUBICIN [Suspect]
     Active Substance: EPIRUBICIN
     Indication: Product used for unknown indication
     Dosage: ACCORDING TO THE SCHEME, INJECTION / INFUSION
     Route: 042
  2. CYCLOPHOSPHAMIDE [Suspect]
     Active Substance: CYCLOPHOSPHAMIDE
     Indication: Product used for unknown indication
     Dosage: ACCORDING TO THE SCHEME, INJECTION / INFUSION
     Route: 042
  3. PANTOPRAZOLE [Concomitant]
     Active Substance: PANTOPRAZOLE
     Dosage: 40 MILLIGRAM (40 MG, 1-0-0-0, TABLET)
     Route: 048
  4. FUNGIZID [Concomitant]
     Dosage: SALBE
     Route: 067
  5. LEVOTHYROXINUM NATRICUM [Concomitant]
     Dosage: 25 MICROGRAM (25 ?G, 1-0-0-0, TABLET)
     Route: 048
  6. IODINE [Concomitant]
     Active Substance: IODINE
     Dosage: 200 MICROGRAM (200 ?G, 1-0-0-0, TABLET)
     Route: 048

REACTIONS (2)
  - Dyspnoea [Unknown]
  - Musculoskeletal pain [Unknown]
